FAERS Safety Report 20304266 (Version 1)
Quarter: 2022Q1

REPORT INFORMATION
  Report Type: Report from Study
  Country: IT (occurrence: IT)
  Receive Date: 20220106
  Receipt Date: 20220106
  Transmission Date: 20220423
  Serious: Yes (Hospitalization)
  Sender: FDA-Public Use
  Company Number: None

PATIENT
  Age: 45 Year
  Sex: Female

DRUGS (7)
  1. CISPLATIN [Suspect]
     Active Substance: CISPLATIN
     Indication: Chemotherapy
     Dosage: STRENGTH: 1 MG /ML; BRAND NAME: ACCORD HEALTHCARE
     Route: 042
  2. PACLITAXEL [Suspect]
     Active Substance: PACLITAXEL
     Indication: Chemotherapy
     Dosage: BRAND NAME: PACLITAXEL SANDOZ
     Route: 042
  3. METOCLOPRAMIDE HYDROCHLORIDE [Concomitant]
     Active Substance: METOCLOPRAMIDE HYDROCHLORIDE
     Route: 030
  4. FILGRASTIM [Concomitant]
     Active Substance: FILGRASTIM
     Dosage: STRENGTH: 30 MU /0.5 ML, DOSAGE FORM: SOLUTION FOR INJECTION OR INFUSION IN PRE-FILLED SYRINGE
     Route: 058
  5. ONDANSETRON [Concomitant]
     Active Substance: ONDANSETRON
     Dosage: STRENGTH: 4 MG
     Route: 048
  6. ABSTRAL [Concomitant]
     Active Substance: FENTANYL CITRATE
     Dosage: STRENGTH: 100 MICROGRAMS
     Route: 048
  7. FENPATCH [Concomitant]
     Dosage: STRENGTH: 25 MICROGRAMS
     Route: 062

REACTIONS (3)
  - Abdominal pain upper [Recovered/Resolved]
  - Vomiting [Recovered/Resolved]
  - Nausea [Recovered/Resolved]

NARRATIVE: CASE EVENT DATE: 20210212
